FAERS Safety Report 4768535-X (Version None)
Quarter: 2005Q3

REPORT INFORMATION
  Report Type: 
  Country: None (occurrence: None)
  Receive Date: 20050914
  Receipt Date: 20050907
  Transmission Date: 20060218
  Serious: Yes (Death)
  Sender: FDA-Public Use
  Company Number: US-JNJFOC-20050902676

PATIENT
  Age: 34 Year
  Sex: Female

DRUGS (5)
  1. ACETAMINOPHEN AND TRAMADOL HCL [Suspect]
  2. ASPIRIN [Suspect]
     Indication: DRUG USE FOR UNKNOWN INDICATION
  3. HYDROCODONE BITARTRATE + ACETAMINOPHEN [Suspect]
  4. HYDROCODONE BITARTRATE + ACETAMINOPHEN [Suspect]
  5. ETHANOL [Suspect]
     Indication: DRUG USE FOR UNKNOWN INDICATION

REACTIONS (7)
  - CONFUSIONAL STATE [None]
  - DRUG ABUSER [None]
  - HEPATIC FAILURE [None]
  - INTENTIONAL MISUSE [None]
  - OVERDOSE [None]
  - RENAL FAILURE [None]
  - SOMNOLENCE [None]
